FAERS Safety Report 6004537-3 (Version None)
Quarter: 2008Q4

REPORT INFORMATION
  Report Type: 
  Country: None (occurrence: None)
  Receive Date: 20081216
  Receipt Date: 20081212
  Transmission Date: 20090506
  Serious: Yes (Other)
  Sender: FDA-Public Use
  Company Number: GB-TEVA-168908ISR

PATIENT
  Age: 37 Year
  Sex: Female
  Weight: 101 kg

DRUGS (4)
  1. AMITRIPTYLINE HCL [Suspect]
     Route: 048
     Dates: start: 20071212, end: 20080110
  2. ENOXAPARIN SODIUM [Suspect]
     Indication: DEEP VEIN THROMBOSIS
     Dates: start: 20050501, end: 20080101
  3. ENOXAPARIN SODIUM [Suspect]
     Indication: PROPHYLAXIS
  4. ENOXAPARIN SODIUM [Suspect]
     Indication: PULMONARY EMBOLISM

REACTIONS (7)
  - ARTHRALGIA [None]
  - DEEP VEIN THROMBOSIS [None]
  - DRUG INEFFECTIVE [None]
  - ECZEMA [None]
  - OSTEOPENIA [None]
  - PULMONARY EMBOLISM [None]
  - RASH PRURITIC [None]
